FAERS Safety Report 6200699-3 (Version None)
Quarter: 2009Q2

REPORT INFORMATION
  Report Type: 
  Country: None (occurrence: None)
  Receive Date: 20090522
  Receipt Date: 20090520
  Transmission Date: 20091009
  Serious: Yes (Hospitalization)
  Sender: FDA-Public Use
  Company Number: DE-MERCK-0904DEU00067

PATIENT
  Age: 33 Year
  Sex: Male
  Weight: 82 kg

DRUGS (3)
  1. ZOCOR [Suspect]
     Indication: HYPERLIPIDAEMIA
     Route: 048
     Dates: start: 20080201, end: 20090401
  2. ZOCOR [Suspect]
     Route: 048
     Dates: start: 20040901, end: 20040101
  3. METFORMIN [Concomitant]
     Route: 048

REACTIONS (1)
  - PANCREATITIS CHRONIC [None]
